FAERS Safety Report 20707667 (Version 5)
Quarter: 2023Q4

REPORT INFORMATION
  Report Type: Report from Study
  Country: JP (occurrence: JP)
  Receive Date: 20220413
  Receipt Date: 20231129
  Transmission Date: 20240110
  Serious: Yes (Other)
  Sender: FDA-Public Use
  Company Number: JP-TAKEDA-2022TJP025638

PATIENT
  Age: 78 Year
  Sex: Male
  Weight: 72 kg

DRUGS (19)
  1. LEUPROLIDE ACETATE [Suspect]
     Active Substance: LEUPROLIDE ACETATE
     Indication: Bulbospinal muscular atrophy congenital
     Dosage: 11.25 MILLIGRAM, Q3MONTHS?1ST INJECTION
     Route: 058
     Dates: start: 20180405, end: 20180405
  2. LEUPROLIDE ACETATE [Suspect]
     Active Substance: LEUPROLIDE ACETATE
     Dosage: 2ND INJECTION
     Route: 058
     Dates: start: 20180628, end: 20180628
  3. LEUPROLIDE ACETATE [Suspect]
     Active Substance: LEUPROLIDE ACETATE
     Dosage: 3RD INJECTION
     Route: 058
     Dates: start: 20180920, end: 20180920
  4. LEUPROLIDE ACETATE [Suspect]
     Active Substance: LEUPROLIDE ACETATE
     Dosage: 4TH INJECTION
     Route: 058
     Dates: start: 20181213, end: 20181213
  5. LEUPROLIDE ACETATE [Suspect]
     Active Substance: LEUPROLIDE ACETATE
     Dosage: 5TH INJECTION
     Route: 058
     Dates: start: 20190307, end: 20190307
  6. LEUPROLIDE ACETATE [Suspect]
     Active Substance: LEUPROLIDE ACETATE
     Dosage: 6TH INJECTION
     Route: 058
     Dates: start: 20190606, end: 20190606
  7. LEUPROLIDE ACETATE [Suspect]
     Active Substance: LEUPROLIDE ACETATE
     Dosage: 7TH INJECTION
     Route: 058
     Dates: start: 20190905, end: 20190905
  8. LEUPROLIDE ACETATE [Suspect]
     Active Substance: LEUPROLIDE ACETATE
     Dosage: 8TH INJECTION
     Route: 058
     Dates: start: 20191205, end: 20191205
  9. LEUPROLIDE ACETATE [Suspect]
     Active Substance: LEUPROLIDE ACETATE
     Dosage: 9TH INJECTION
     Route: 058
     Dates: start: 20200305, end: 20200305
  10. LEUPROLIDE ACETATE [Suspect]
     Active Substance: LEUPROLIDE ACETATE
     Dosage: 10TH INJECTION
     Route: 058
     Dates: start: 20200528, end: 20200528
  11. TADALAFIL [Concomitant]
     Active Substance: TADALAFIL
     Indication: Product used for unknown indication
     Dosage: 5 MILLIGRAM
     Route: 065
     Dates: start: 20190425, end: 20200528
  12. ROZEREM [Concomitant]
     Active Substance: RAMELTEON
     Indication: Insomnia
     Dosage: 8 MILLIGRAM
     Route: 065
  13. CYMBALTA [Concomitant]
     Active Substance: DULOXETINE HYDROCHLORIDE
     Indication: Depression
     Dosage: 20 MILLIGRAM
     Route: 065
  14. SILODOSIN [Concomitant]
     Active Substance: SILODOSIN
     Indication: Benign prostatic hyperplasia
     Dosage: 8 MILLIGRAM
     Route: 065
  15. LIMAPROST [Concomitant]
     Active Substance: LIMAPROST
     Indication: Lumbar spinal stenosis
     Dosage: 15 MICROGRAM
     Route: 065
  16. DESYREL [Concomitant]
     Active Substance: TRAZODONE HYDROCHLORIDE
     Indication: Depression
     Dosage: 25 MILLIGRAM
     Route: 065
  17. FUDOSTEINE [Concomitant]
     Active Substance: FUDOSTEINE
     Indication: Bronchitis chronic
     Dosage: 1200 MILLIGRAM
     Route: 065
  18. AMARYL [Concomitant]
     Active Substance: GLIMEPIRIDE
     Indication: Product used for unknown indication
     Dosage: 1 MILLIGRAM
     Route: 065
  19. DIAZEPAM [Concomitant]
     Active Substance: DIAZEPAM
     Indication: Neurosis
     Dosage: 10 MILLIGRAM
     Route: 065

REACTIONS (5)
  - Diabetes mellitus [Recovering/Resolving]
  - Depression [Recovering/Resolving]
  - Blood testosterone decreased [Recovered/Resolved]
  - Condition aggravated [Recovering/Resolving]
  - Diabetes mellitus [Recovering/Resolving]

NARRATIVE: CASE EVENT DATE: 20190502
